FAERS Safety Report 8618055-7 (Version None)
Quarter: 2012Q3

REPORT INFORMATION
  Report Type: 
  Country: None (occurrence: None)
  Receive Date: 20120824
  Receipt Date: 20120301
  Transmission Date: 20120928
  Serious: No
  Sender: FDA-Public Use
  Company Number: US-ASTRAZENECA-2012SE09113

PATIENT
  Age: 48 Year
  Sex: Female
  Weight: 61.7 kg

DRUGS (9)
  1. ALBUTEROL [Concomitant]
     Dosage: FOUR TIMES A DAY WITH BREATHING MACHINE
  2. TRAZIDONE [Concomitant]
  3. XANAX [Concomitant]
  4. SYMBICORT [Suspect]
     Indication: CHRONIC OBSTRUCTIVE PULMONARY DISEASE
     Dosage: 2 PUFFS BID
     Route: 055
  5. SEROQUEL XR [Suspect]
     Indication: BIPOLAR DISORDER
     Route: 048
  6. PAXIL [Concomitant]
  7. DOPANEX [Concomitant]
  8. OXYGEN [Concomitant]
     Dosage: 24/7
  9. LISINOPRIL [Concomitant]

REACTIONS (3)
  - ANXIETY [None]
  - DRUG INEFFECTIVE [None]
  - CHRONIC OBSTRUCTIVE PULMONARY DISEASE [None]
